FAERS Safety Report 17547044 (Version 1)
Quarter: 2020Q1

REPORT INFORMATION
  Report Type: Spontaneous
  Country: BR (occurrence: BR)
  Receive Date: 20200316
  Receipt Date: 20200316
  Transmission Date: 20200409
  Serious: Yes (Other)
  Sender: FDA-Public Use
  Company Number: BR-LUNDBECK-DKLU3010491

PATIENT
  Age: 8 Year
  Sex: Female
  Weight: 50 kg

DRUGS (3)
  1. FRISIUM [Suspect]
     Active Substance: CLOBAZAM
     Indication: EPILEPSY
     Route: 048
  2. FRISIUM [Suspect]
     Active Substance: CLOBAZAM
     Route: 065
  3. CARBAMAZEPIN [Concomitant]
     Active Substance: CARBAMAZEPINE
     Indication: PRODUCT USED FOR UNKNOWN INDICATION
     Dosage: 20 MG/ML
     Route: 065

REACTIONS (3)
  - Seizure [Unknown]
  - Wrong technique in product usage process [Unknown]
  - Drug dependence [Unknown]
